FAERS Safety Report 20281780 (Version 8)
Quarter: 2022Q3

REPORT INFORMATION
  Report Type: Report from Study
  Country: US (occurrence: US)
  Receive Date: 20220103
  Receipt Date: 20220916
  Transmission Date: 20221027
  Serious: Yes (Life-Threatening, Hospitalization, Other)
  Sender: FDA-Public Use
  Company Number: US-TEVA-2021-US-1995884

PATIENT
  Age: 18 Year
  Sex: Male
  Weight: 83.3 kg

DRUGS (28)
  1. PREDNISONE [Suspect]
     Active Substance: PREDNISONE
     Indication: Acute lymphocytic leukaemia
     Dosage: 80 MILLIGRAM DAILY;
     Route: 048
     Dates: start: 20211005
  2. PREDNISONE [Suspect]
     Active Substance: PREDNISONE
     Dosage: ON DAYS 1-5,29-33, 57-61 OF EACH CYCLE
     Route: 048
     Dates: start: 20210421, end: 20220423
  3. PREDNISONE [Suspect]
     Active Substance: PREDNISONE
     Dosage: ON DAYS 1-5,29-33, 57-61 OF EACH CYCLE
     Route: 048
     Dates: start: 20220628
  4. METHOTREXATE [Suspect]
     Active Substance: METHOTREXATE
     Indication: Acute lymphocytic leukaemia
     Dosage: 15 MILLIGRAM ONCE
     Route: 037
     Dates: start: 20211005, end: 20211221
  5. METHOTREXATE [Suspect]
     Active Substance: METHOTREXATE
     Dosage: OF DAY 1 OF EACH CYCLE
     Route: 037
     Dates: start: 20201007
  6. METHOTREXATE [Suspect]
     Active Substance: METHOTREXATE
     Indication: Acute lymphocytic leukaemia
     Route: 048
     Dates: start: 20211012, end: 20211216
  7. METHOTREXATE [Suspect]
     Active Substance: METHOTREXATE
     Route: 048
     Dates: start: 20220222, end: 20220304
  8. METHOTREXATE [Suspect]
     Active Substance: METHOTREXATE
     Route: 048
  9. METHOTREXATE [Suspect]
     Active Substance: METHOTREXATE
     Route: 048
     Dates: start: 20220329, end: 20220503
  10. METHOTREXATE [Suspect]
     Active Substance: METHOTREXATE
     Route: 048
     Dates: start: 20220705
  11. VINCRISTINE [Suspect]
     Active Substance: VINCRISTINE
     Indication: Acute lymphocytic leukaemia
     Dosage: ONCE
     Route: 042
     Dates: start: 20211005, end: 20220222
  12. VINCRISTINE [Suspect]
     Active Substance: VINCRISTINE
     Dosage: ON DAY 1,29 AND 57 OF EACH CYCLE
     Route: 042
     Dates: start: 20200923, end: 20220419
  13. VINCRISTINE [Suspect]
     Active Substance: VINCRISTINE
     Dosage: ON DAY 1,29 AND 57 OF EACH CYCLE
     Route: 042
     Dates: start: 20220628
  14. RUXOLITINIB [Suspect]
     Active Substance: RUXOLITINIB
     Indication: Acute lymphocytic leukaemia
     Dosage: 200 MILLIGRAM DAILY;
     Route: 048
     Dates: start: 20211005
  15. RUXOLITINIB [Suspect]
     Active Substance: RUXOLITINIB
     Dosage: 100 MILLIGRAM DAILY; ON DAYS 1-14, 29-42, 57-70; ORAL USE
     Route: 048
     Dates: start: 20211228, end: 20220304
  16. RUXOLITINIB [Suspect]
     Active Substance: RUXOLITINIB
     Dosage: 95 MILLIGRAM DAILY; ON DAYS 1-14, 29-42, 57-70; ORAL USE
     Route: 048
     Dates: start: 20220422, end: 20220502
  17. RUXOLITINIB [Suspect]
     Active Substance: RUXOLITINIB
     Dosage: 95 MILLIGRAM DAILY; ON DAYS 1-14, 29-42, 57-70; ORAL USE
     Route: 048
     Dates: start: 20220628
  18. MERCAPTOPURINE [Suspect]
     Active Substance: MERCAPTOPURINE
     Indication: Acute lymphocytic leukaemia
     Route: 048
     Dates: start: 20211005, end: 20211216
  19. MERCAPTOPURINE [Suspect]
     Active Substance: MERCAPTOPURINE
     Dosage: 25 MILLIGRAM DAILY;
     Route: 048
     Dates: start: 20220222, end: 20220304
  20. MERCAPTOPURINE [Suspect]
     Active Substance: MERCAPTOPURINE
     Dosage: 25 MILLIGRAM DAILY;
     Route: 048
     Dates: start: 20220318, end: 20220509
  21. MERCAPTOPURINE [Suspect]
     Active Substance: MERCAPTOPURINE
     Dosage: 25 MILLIGRAM DAILY;
     Route: 048
     Dates: start: 20220628
  22. MERCAPTOPURINE [Suspect]
     Active Substance: MERCAPTOPURINE
     Dosage: DOSE REDUCTION
     Route: 048
     Dates: start: 20211230
  23. BACTRIM [Concomitant]
     Active Substance: SULFAMETHOXAZOLE\TRIMETHOPRIM
     Indication: Product used for unknown indication
     Dates: start: 20200624
  24. ATIVAN [Concomitant]
     Active Substance: LORAZEPAM
     Indication: Product used for unknown indication
     Dates: start: 20210521
  25. MIRALAX [Concomitant]
     Active Substance: POLYETHYLENE GLYCOL 3350
     Indication: Product used for unknown indication
     Dates: start: 20200502
  26. ZOFRAN [Concomitant]
     Active Substance: ONDANSETRON HYDROCHLORIDE
     Indication: Product used for unknown indication
     Dates: start: 20200502
  27. FLONASE [Concomitant]
     Active Substance: FLUTICASONE PROPIONATE
     Indication: Product used for unknown indication
     Dates: start: 20211217
  28. XARELTO [Concomitant]
     Active Substance: RIVAROXABAN
     Indication: Product used for unknown indication
     Route: 065
     Dates: start: 20220304

REACTIONS (7)
  - Febrile neutropenia [Recovered/Resolved with Sequelae]
  - Liver function test increased [Unknown]
  - Cytomegalovirus infection [Not Recovered/Not Resolved]
  - Clostridium difficile infection [Unknown]
  - Aspergillus infection [Recovering/Resolving]
  - Hyperhidrosis [Unknown]
  - Aspiration [Recovered/Resolved]

NARRATIVE: CASE EVENT DATE: 20210101
